FAERS Safety Report 14242182 (Version 1)
Quarter: 2017Q4

REPORT INFORMATION
  Report Type: Spontaneous
  Country: US (occurrence: US)
  Receive Date: 20171201
  Receipt Date: 20171201
  Transmission Date: 20180321
  Serious: No
  Sender: FDA-Public Use
  Company Number: US-BIOGEN-2017BI00487737

PATIENT
  Sex: Female

DRUGS (1)
  1. PLEGRIDY [Suspect]
     Active Substance: PEGINTERFERON BETA-1A
     Indication: MULTIPLE SCLEROSIS
     Route: 065
     Dates: start: 20160322

REACTIONS (8)
  - Pruritus [Unknown]
  - Alopecia [Unknown]
  - Anaemia [Unknown]
  - Skin burning sensation [Unknown]
  - Hypertension [Unknown]
  - Chills [Recovered/Resolved]
  - Rash [Unknown]
  - Psoriatic arthropathy [Unknown]
